FAERS Safety Report 8812101 (Version 2)
Quarter: 2014Q2

REPORT INFORMATION
  Report Type: Report from Study
  Country: US (occurrence: US)
  Receive Date: 20120927
  Receipt Date: 20131219
  Transmission Date: 20141212
  Serious: Yes (Death)
  Sender: FDA-Public Use
  Company Number: US-ROCHE-1138190

PATIENT
  Sex: Male

DRUGS (21)
  1. AVASTIN [Suspect]
     Indication: BONE CANCER
     Route: 042
     Dates: start: 20120309
  2. AVASTIN [Suspect]
     Indication: BONE CANCER
     Route: 042
     Dates: start: 20120402
  3. AVASTIN [Suspect]
     Indication: LUNG NEOPLASM MALIGNANT
     Route: 065
     Dates: start: 20120423
  4. AVASTIN [Suspect]
     Indication: BRONCHIAL CARCINOMA
     Route: 065
     Dates: start: 20120514
  5. AVASTIN [Suspect]
     Indication: LUNG NEOPLASM MALIGNANT
  6. NEULASTA [Concomitant]
     Route: 058
     Dates: start: 20120212
  7. NEUPOGEN [Concomitant]
     Route: 058
     Dates: start: 20120227
  8. PROCRIT [Concomitant]
     Route: 058
     Dates: start: 20120305
  9. TAXOL [Concomitant]
  10. CARBOPLATIN [Concomitant]
     Route: 042
     Dates: start: 20120514
  11. ATIVAN [Concomitant]
     Route: 065
  12. ZOMETA [Concomitant]
     Route: 042
     Dates: start: 20120305
  13. ALIMTA [Concomitant]
     Route: 042
     Dates: start: 20120309, end: 20120309
  14. ALIMTA [Concomitant]
     Route: 042
     Dates: start: 20120402
  15. ALOXI [Concomitant]
     Route: 042
     Dates: start: 20120309
  16. ALOXI [Concomitant]
     Route: 065
     Dates: start: 20120402
  17. TESTOSTERONE [Concomitant]
     Route: 030
     Dates: start: 20120402
  18. DEXTROSE [Concomitant]
     Route: 042
     Dates: start: 20120309
  19. BENADRYL (UNITED STATES) [Concomitant]
     Route: 042
     Dates: start: 20120309
  20. CALCIUM GLUCONATE [Concomitant]
     Route: 042
     Dates: start: 20120507
  21. LASIX [Concomitant]
     Route: 065
     Dates: start: 20120507

REACTIONS (1)
  - Disease progression [Fatal]
